FAERS Safety Report 10286122 (Version 1)
Quarter: 2014Q3

REPORT INFORMATION
  Report Type: Spontaneous
  Country: US (occurrence: None)
  Receive Date: 20140703
  Receipt Date: 20140703
  Transmission Date: 20150326
  Serious: Yes (Other)
  Sender: FDA-Public Use
  Company Number: 2415153

PATIENT
  Age: 9 Year
  Sex: Male

DRUGS (6)
  1. DACARBAZINE. [Suspect]
     Active Substance: DACARBAZINE
     Indication: NEUROBLASTOMA
  2. DACARBAZINE. [Suspect]
     Active Substance: DACARBAZINE
     Indication: METASTASIS
  3. DOXORUBICIN [Suspect]
     Active Substance: DOXORUBICIN
     Indication: NEUROBLASTOMA
  4. (VINCRISTINE SULFATE) [Suspect]
     Active Substance: VINCRISTINE SULFATE
     Indication: NEUROBLASTOMA
  5. (VINCRISTINE SULFATE) [Suspect]
     Active Substance: VINCRISTINE SULFATE
  6. DOXORUBICIN [Suspect]
     Active Substance: DOXORUBICIN
     Indication: METASTASIS

REACTIONS (12)
  - Osteoma [None]
  - Colon adenoma [None]
  - Parathyroid tumour benign [None]
  - Rectal adenoma [None]
  - Gastric polyps [None]
  - Large intestine polyp [None]
  - Abnormal behaviour [None]
  - Cognitive disorder [None]
  - Meningioma [None]
  - Papillary thyroid cancer [None]
  - Duodenal polyp [None]
  - Desmoid tumour [None]
